FAERS Safety Report 7716442-2 (Version None)
Quarter: 2011Q3

REPORT INFORMATION
  Report Type: 
  Country: None (occurrence: None)
  Receive Date: 20110829
  Receipt Date: 20110818
  Transmission Date: 20111222
  Serious: Yes (Hospitalization, Disabling, Other)
  Sender: FDA-Public Use
  Company Number: US-MERCK-0810USA00407

PATIENT
  Age: 64 Year
  Sex: Female
  Weight: 91 kg

DRUGS (4)
  1. FOSAMAX [Suspect]
     Indication: OSTEOPOROSIS
     Route: 048
     Dates: start: 19960101, end: 20070101
  2. FOSAMAX [Suspect]
     Route: 048
     Dates: start: 20010402
  3. FOSAMAX [Suspect]
     Route: 048
     Dates: start: 20020211
  4. FOSAMAX [Suspect]
     Route: 048
     Dates: start: 20060101

REACTIONS (85)
  - RENAL TUBULAR NECROSIS [None]
  - DIASTOLIC DYSFUNCTION [None]
  - ASTHENIA [None]
  - ISCHAEMIC CARDIOMYOPATHY [None]
  - PICKWICKIAN SYNDROME [None]
  - PNEUMONIA [None]
  - URINARY TRACT INFECTION [None]
  - TRANSIENT ISCHAEMIC ATTACK [None]
  - CHEST PAIN [None]
  - ANAEMIA OF CHRONIC DISEASE [None]
  - ACUTE MYOCARDIAL INFARCTION [None]
  - BLADDER DISORDER [None]
  - CARDIAC DISORDER [None]
  - DEPRESSION [None]
  - DEHYDRATION [None]
  - OSTEOARTHRITIS [None]
  - SLEEP APNOEA SYNDROME [None]
  - DYSPNOEA [None]
  - ANAEMIA [None]
  - PSYCHOTIC DISORDER [None]
  - TOOTH SOCKET HAEMORRHAGE [None]
  - CATARACT [None]
  - BRADYCARDIA [None]
  - ARTERIOSCLEROSIS CORONARY ARTERY [None]
  - BACTERIAL DISEASE CARRIER [None]
  - NAUSEA [None]
  - PAIN IN JAW [None]
  - HEMIPARESIS [None]
  - VOMITING [None]
  - VIRAL UPPER RESPIRATORY TRACT INFECTION [None]
  - CELLULITIS [None]
  - TOOTH ABSCESS [None]
  - ANXIETY [None]
  - DIABETES MELLITUS [None]
  - CARDIOMEGALY [None]
  - DEMENTIA [None]
  - CORONARY ARTERY DISEASE [None]
  - INSPIRATORY CAPACITY DECREASED [None]
  - HYPOXIA [None]
  - GOUTY ARTHRITIS [None]
  - ORAL PAIN [None]
  - SENSITIVITY OF TEETH [None]
  - PERIPHERAL ARTERIAL OCCLUSIVE DISEASE [None]
  - OEDEMA PERIPHERAL [None]
  - BACK PAIN [None]
  - ACUTE RESPIRATORY FAILURE [None]
  - CARDIAC FAILURE CONGESTIVE [None]
  - HIP FRACTURE [None]
  - TRAUMATIC ULCER [None]
  - SPINAL DISORDER [None]
  - ESCHERICHIA URINARY TRACT INFECTION [None]
  - BRONCHITIS [None]
  - GINGIVAL BLEEDING [None]
  - BACTERAEMIA [None]
  - OSTEONECROSIS OF JAW [None]
  - COAGULATION TIME PROLONGED [None]
  - INTERVERTEBRAL DISC DEGENERATION [None]
  - OXYGEN CONSUMPTION DECREASED [None]
  - OBESITY [None]
  - FUNGAL SKIN INFECTION [None]
  - ATROPHY [None]
  - RENAL FAILURE ACUTE [None]
  - CAROTID ARTERY DISEASE [None]
  - JAW DISORDER [None]
  - FUNCTIONAL GASTROINTESTINAL DISORDER [None]
  - OSTEOMYELITIS [None]
  - MYOFASCIAL PAIN SYNDROME [None]
  - SICK SINUS SYNDROME [None]
  - RESPIRATORY FAILURE [None]
  - PAIN IN EXTREMITY [None]
  - OXYGEN SATURATION DECREASED [None]
  - CEREBROVASCULAR ACCIDENT [None]
  - FALL [None]
  - EPISTAXIS [None]
  - ATRIAL FIBRILLATION [None]
  - CHRONIC OBSTRUCTIVE PULMONARY DISEASE [None]
  - KYPHOSCOLIOSIS [None]
  - INFECTIVE EXACERBATION OF CHRONIC OBSTRUCTIVE AIRWAYS DISEASE [None]
  - ELECTROCARDIOGRAM ST SEGMENT ABNORMAL [None]
  - PLEURAL EFFUSION [None]
  - DYSPHAGIA [None]
  - HERPES ZOSTER [None]
  - NEURALGIA [None]
  - LABYRINTHITIS [None]
  - DYSLIPIDAEMIA [None]
